FAERS Safety Report 15994265 (Version 2)
Quarter: 2020Q2

REPORT INFORMATION
  Report Type: Report from Study
  Country: US (occurrence: US)
  Receive Date: 20190222
  Receipt Date: 20200422
  Transmission Date: 20200713
  Serious: Yes (Other)
  Sender: FDA-Public Use
  Company Number: US-ROCHE-2269845

PATIENT
  Sex: Female

DRUGS (2)
  1. OCREVUS [Suspect]
     Active Substance: OCRELIZUMAB
     Dosage: SUBSEQUENT DOSES ON 29/MAR/2018, 06/APR/2018, 26/SEP/2018 AND 02/OCT/2018.
     Route: 042
  2. OCREVUS [Suspect]
     Active Substance: OCRELIZUMAB
     Indication: MULTIPLE SCLEROSIS
     Dosage: SUBSEQUENT DOSES ON 29/MAR/2018, 06/APR/2018, 26/SEP/2018 AND 02/OCT/2018.
     Route: 042
     Dates: start: 20180323

REACTIONS (4)
  - Relapsing multiple sclerosis [Not Recovered/Not Resolved]
  - Dermatitis [Unknown]
  - Cystitis [Unknown]
  - Multiple sclerosis relapse [Not Recovered/Not Resolved]
